FAERS Safety Report 13410688 (Version 1)
Quarter: 2017Q2

REPORT INFORMATION
  Report Type: Spontaneous
  Country: DK (occurrence: DK)
  Receive Date: 20170406
  Receipt Date: 20170406
  Transmission Date: 20170830
  Serious: Yes (Hospitalization)
  Sender: FDA-Public Use
  Company Number: DK-AUROBINDO-AUR-APL-2017-32047

PATIENT
  Age: 40 Year
  Sex: Male

DRUGS (1)
  1. PRAMIPEXOLE AUROBINDO 0.18MG TABLETS [Suspect]
     Active Substance: PRAMIPEXOLE
     Indication: RESTLESS LEGS SYNDROME
     Dosage: 1 + 1 + 2 STRENGTH (0.18 MG/245)
     Route: 065
     Dates: start: 20170202, end: 20170318

REACTIONS (1)
  - Seizure [Unknown]

NARRATIVE: CASE EVENT DATE: 20170318
